FAERS Safety Report 18822648 (Version 11)
Quarter: 2024Q2

REPORT INFORMATION
  Report Type: Other
  Country: CA (occurrence: None)
  Receive Date: 20210202
  Receipt Date: 20240520
  Transmission Date: 20240716
  Serious: Yes (Hospitalization, Other)
  Sender: FDA-Public Use
  Company Number: CA-ROCHE-2758224

PATIENT
  Age: 46 Year
  Sex: Male

DRUGS (4)
  1. OCREVUS [Suspect]
     Active Substance: OCRELIZUMAB
     Indication: Relapsing-remitting multiple sclerosis
     Dosage: 300 MG AT DAY 0 AND 14, THEN 600 MG EVERY 6 MONTH
     Route: 042
     Dates: start: 20200220
  2. BACLOFEN [Concomitant]
     Active Substance: BACLOFEN
  3. PERINDOPRIL [Concomitant]
     Active Substance: PERINDOPRIL
     Indication: Hypertension
  4. MODERNA COVID-19 VACCINE [Concomitant]
     Active Substance: ELASOMERAN
     Dosage: SECOND DOSE: /AUG/2021
     Dates: start: 202107

REACTIONS (7)
  - COVID-19 pneumonia [Recovered/Resolved]
  - Trigeminal neuralgia [Not Recovered/Not Resolved]
  - Brain fog [Recovered/Resolved]
  - Gait disturbance [Unknown]
  - Diplopia [Recovered/Resolved]
  - Muscle twitching [Recovered/Resolved]
  - Cough [Not Recovered/Not Resolved]

NARRATIVE: CASE EVENT DATE: 20201203
